FAERS Safety Report 10665313 (Version 1)
Quarter: 2014Q4

REPORT INFORMATION
  Report Type: Spontaneous
  Country: SE (occurrence: SE)
  Receive Date: 20141219
  Receipt Date: 20141219
  Transmission Date: 20150529
  Serious: Yes (Life-Threatening)
  Sender: FDA-Public Use
  Company Number: SE-009507513-1412SWE008750

PATIENT
  Age: 58 Year
  Sex: Female

DRUGS (4)
  1. SYMBICORT [Concomitant]
     Active Substance: BUDESONIDE\FORMOTEROL FUMARATE DIHYDRATE
     Indication: ASTHMA
     Dosage: UNK
     Route: 055
  2. OVESTERIN [Suspect]
     Active Substance: ESTRIOL
     Indication: OESTROGEN DEFICIENCY
     Dosage: 1 DF, HS (0.5 MG)
     Route: 065
     Dates: start: 20141012, end: 20141012
  3. LEVAXIN [Concomitant]
     Active Substance: LEVOTHYROXINE SODIUM
     Indication: HYPERTHYROIDISM
     Dosage: UNK
     Route: 065
  4. OVESTERIN [Suspect]
     Active Substance: ESTRIOL
     Dosage: 1 DF, HS (0.5 MG)
     Route: 065
     Dates: start: 20141128, end: 20141128

REACTIONS (7)
  - Chills [Recovered/Resolved]
  - Influenza like illness [Recovered/Resolved]
  - Headache [Recovered/Resolved]
  - Vomiting [Recovered/Resolved]
  - Myalgia [Recovered/Resolved]
  - Nausea [Recovered/Resolved]
  - Pyrexia [Recovered/Resolved]

NARRATIVE: CASE EVENT DATE: 20141013
